FAERS Safety Report 9631442 (Version 2)
Quarter: 2013Q4

REPORT INFORMATION
  Report Type: Spontaneous
  Country: US (occurrence: US)
  Receive Date: 20131018
  Receipt Date: 20131018
  Transmission Date: 20140711
  Serious: Yes (Hospitalization)
  Sender: FDA-Public Use
  Company Number: US-BANPHARM-20131777

PATIENT
  Age: 66 Year
  Sex: Female
  Weight: 84.82 kg

DRUGS (3)
  1. ALEVE LIQUID GELS 220 MG [Suspect]
     Indication: ARTHRITIS
     Dosage: 1 DF, TID,
     Route: 048
     Dates: start: 2000
  2. HIGH BLOOD PRESSURE PILL [Concomitant]
  3. ZOLOFT [Concomitant]

REACTIONS (5)
  - Choking [Recovered/Resolved]
  - Foreign body [Recovered/Resolved]
  - Pneumonia bacterial [Unknown]
  - Asthenia [Not Recovered/Not Resolved]
  - Incorrect drug administration duration [Unknown]
